FAERS Safety Report 16314032 (Version 1)
Quarter: 2019Q2

REPORT INFORMATION
  Report Type: Spontaneous
  Country: US (occurrence: US)
  Receive Date: 20190514
  Receipt Date: 20190514
  Transmission Date: 20190711
  Serious: No
  Sender: FDA-Public Use
  Company Number: None

PATIENT
  Sex: Female

DRUGS (1)
  1. OASIS TEARS [Suspect]
     Active Substance: GLYCERIN

REACTIONS (2)
  - Lacrimation increased [None]
  - Eye irritation [None]
